FAERS Safety Report 4698500-2 (Version None)
Quarter: 2005Q2

REPORT INFORMATION
  Report Type: 
  Country: None (occurrence: None)
  Receive Date: 20050621
  Receipt Date: 20050602
  Transmission Date: 20051028
  Serious: Yes (Other)
  Sender: FDA-Public Use
  Company Number: EWC041040992

PATIENT
  Age: 81 Year
  Sex: Female

DRUGS (2)
  1. FORTEO [Suspect]
     Indication: OSTEOPOROSIS
     Dates: start: 20040731, end: 20040825
  2. FORTEO [Suspect]
     Indication: OSTEOPOROSIS
     Dates: start: 20050430

REACTIONS (3)
  - AMNESIA [None]
  - PAIN [None]
  - TEMPORAL ARTERITIS [None]
